FAERS Safety Report 8512863-9 (Version None)
Quarter: 2012Q3

REPORT INFORMATION
  Report Type: 
  Country: None (occurrence: None)
  Receive Date: 20120705
  Receipt Date: 20120619
  Transmission Date: 20120928
  Serious: Yes (Other)
  Sender: FDA-Public Use
  Company Number: FK201201777

PATIENT
  Age: 58 Year
  Sex: Female

DRUGS (4)
  1. LEUCOVORIN CALCIUM [Suspect]
     Indication: COLON CANCER METASTATIC
  2. FLUOROURACIL [Suspect]
     Indication: COLON CANCER METASTATIC
  3. BEVACIZUMAB (BEVACIZUMAB) (BEVACIZUMAB) [Suspect]
     Indication: COLON CANCER
  4. IRINOTECAN HCL [Suspect]
     Indication: COLON CANCER METASTATIC

REACTIONS (2)
  - HAEMOGLOBIN DECREASED [None]
  - NEUTROPENIA [None]
